FAERS Safety Report 20572159 (Version 1)
Quarter: 2022Q1

REPORT INFORMATION
  Report Type: Spontaneous
  Country: US (occurrence: None)
  Receive Date: 20220308
  Receipt Date: 20220308
  Transmission Date: 20220423
  Serious: No
  Sender: FDA-Public Use
  Company Number: None

PATIENT
  Sex: Female

DRUGS (1)
  1. KEYTRUDA [Suspect]
     Active Substance: PEMBROLIZUMAB
     Indication: Salivary gland cancer
     Dosage: FREQUENCY : EVERY THREE WEEKS;?
     Route: 042
     Dates: start: 202103

REACTIONS (8)
  - Pneumonia [None]
  - Respiratory distress [None]
  - Weight decreased [None]
  - Visual impairment [None]
  - Vision blurred [None]
  - Deafness [None]
  - Vomiting [None]
  - Headache [None]
